FAERS Safety Report 7961293-7 (Version None)
Quarter: 2011Q4

REPORT INFORMATION
  Report Type: 
  Country: None (occurrence: None)
  Receive Date: 20111207
  Receipt Date: 20111201
  Transmission Date: 20120403
  Serious: Yes (Death)
  Sender: FDA-Public Use
  Company Number: CA-US-EMD SERONO, INC.-7099971

PATIENT
  Sex: Female

DRUGS (6)
  1. VITAMIN D [Concomitant]
  2. CENTRUM [Concomitant]
  3. DIFLUCAN [Concomitant]
  4. CALCIUM [Concomitant]
  5. MULTI-VITAMIN [Concomitant]
  6. REBIF [Suspect]
     Indication: RELAPSING-REMITTING MULTIPLE SCLEROSIS
     Route: 058
     Dates: start: 20100408, end: 20110711

REACTIONS (1)
  - DEATH [None]
